FAERS Safety Report 7139007-2 (Version None)
Quarter: 2010Q4

REPORT INFORMATION
  Report Type: 
  Country: None (occurrence: None)
  Receive Date: 20101206
  Receipt Date: 20101202
  Transmission Date: 20110411
  Serious: Yes (Death)
  Sender: FDA-Public Use
  Company Number: A0897510A

PATIENT
  Sex: Male

DRUGS (1)
  1. PROMACTA [Suspect]
     Indication: HEPATITIS C

REACTIONS (3)
  - HEPATIC FAILURE [None]
  - HEPATITIS [None]
  - RESPIRATORY FAILURE [None]
